FAERS Safety Report 13947336 (Version 1)
Quarter: 2017Q3

REPORT INFORMATION
  Report Type: Spontaneous
  Country: US (occurrence: US)
  Receive Date: 20170908
  Receipt Date: 20170908
  Transmission Date: 20171128
  Serious: Yes (Hospitalization)
  Sender: FDA-Public Use
  Company Number: US-ROCHE-1983081

PATIENT
  Age: 66 Year
  Sex: Female
  Weight: 69.92 kg

DRUGS (18)
  1. DULOXETINE HCL [Concomitant]
     Active Substance: DULOXETINE HYDROCHLORIDE
     Dosage: 1 CAPSULE
     Route: 048
     Dates: start: 20150903
  2. FENTANYL. [Concomitant]
     Active Substance: FENTANYL
     Dosage: 12 MCG/HR ?1 PATCH
     Route: 065
     Dates: start: 20170712
  3. FIBER COMPLETE [Concomitant]
     Dosage: 1 TABLET
     Route: 048
     Dates: end: 20170418
  4. MECLIZINE HCL [Concomitant]
     Active Substance: MECLIZINE HYDROCHLORIDE
     Dosage: 1/2 TO 1 TABLET
     Route: 048
     Dates: start: 20120131
  5. ARIMIDEX [Concomitant]
     Active Substance: ANASTROZOLE
     Indication: INFLAMMATORY CARCINOMA OF THE BREAST
     Dosage: 1 TABLET
     Route: 048
     Dates: start: 20120803
  6. ZOLPIDEM TARTRATE. [Concomitant]
     Active Substance: ZOLPIDEM TARTRATE
     Dosage: 1 TABLET
     Route: 048
     Dates: start: 20110802
  7. ADRIAMYCIN [Concomitant]
     Active Substance: DOXORUBICIN HYDROCHLORIDE
     Dosage: NEOADJUVANT CHEMOTHERAPY
     Route: 065
     Dates: start: 20111212
  8. CYTOXAN [Concomitant]
     Active Substance: CYCLOPHOSPHAMIDE
     Dosage: NEOADJUVANT CHEMOTHERAPY
     Route: 065
     Dates: start: 20111212
  9. HERCEPTIN [Suspect]
     Active Substance: TRASTUZUMAB
     Indication: PRODUCT USED FOR UNKNOWN INDICATION
     Route: 065
     Dates: start: 20120207
  10. XANAX [Suspect]
     Active Substance: ALPRAZOLAM
     Indication: PRODUCT USED FOR UNKNOWN INDICATION
     Dosage: 1 1/2 TABLET
     Route: 048
     Dates: start: 20111118
  11. BENADRYL ALLERGY [Concomitant]
     Active Substance: DIPHENHYDRAMINE HYDROCHLORIDE
     Route: 048
     Dates: start: 20111118
  12. IBUPROFEN. [Concomitant]
     Active Substance: IBUPROFEN
     Dosage: 2 TABLETS
     Route: 048
     Dates: start: 20170411
  13. TRETINOIN. [Concomitant]
     Active Substance: TRETINOIN
     Route: 065
     Dates: start: 20150312
  14. POTASSIUM CHLORIDE. [Concomitant]
     Active Substance: POTASSIUM CHLORIDE
     Route: 048
     Dates: start: 20170712
  15. IBRANCE [Concomitant]
     Active Substance: PALBOCICLIB
     Indication: BREAST CANCER
     Dosage: 1 CAPSULE EVERY DAY ON DAYS 1-21
     Route: 048
     Dates: start: 20170713
  16. TAXOL [Concomitant]
     Active Substance: PACLITAXEL
     Dosage: NEOADJUVANT CHEMOTHERAPY
     Route: 065
     Dates: start: 20111212
  17. ASPIRIN. [Concomitant]
     Active Substance: ASPIRIN
     Dosage: AS NEEDED
     Route: 048
     Dates: start: 20151103
  18. BYSTOLIC [Concomitant]
     Active Substance: NEBIVOLOL HYDROCHLORIDE
     Dosage: 1 TABLET
     Route: 048
     Dates: start: 20170712

REACTIONS (7)
  - Pericardial effusion [Recovered/Resolved]
  - Dysphonia [Unknown]
  - Cardiac tamponade [Recovered/Resolved]
  - Dyspnoea [Unknown]
  - Discomfort [Unknown]
  - Nausea [Unknown]
  - Pleural effusion [Recovering/Resolving]

NARRATIVE: CASE EVENT DATE: 20170703
